FAERS Safety Report 7601223-0 (Version None)
Quarter: 2011Q3

REPORT INFORMATION
  Report Type: 
  Country: None (occurrence: None)
  Receive Date: 20110711
  Receipt Date: 20110708
  Transmission Date: 20111222
  Serious: Yes (Other)
  Sender: FDA-Public Use
  Company Number: DE-GLAXOSMITHKLINE-D0071861A

PATIENT
  Age: 6 Year
  Sex: Female

DRUGS (2)
  1. ALBUTEROL SULFATE [Suspect]
     Indication: BRONCHITIS
     Route: 055
  2. PULMICORT [Concomitant]
     Indication: BRONCHITIS
     Route: 065

REACTIONS (4)
  - PALLOR [None]
  - DIZZINESS [None]
  - CYANOSIS [None]
  - LOSS OF CONSCIOUSNESS [None]
